FAERS Safety Report 24215903 (Version 1)
Quarter: 2024Q3

REPORT INFORMATION
  Report Type: Spontaneous
  Country: US (occurrence: None)
  Receive Date: 20240816
  Receipt Date: 20240816
  Transmission Date: 20241016
  Serious: No
  Sender: OREXO
  Company Number: US-ARIS GLOBAL-ORE202307-000032

PATIENT
  Sex: Male

DRUGS (1)
  1. ZUBSOLV [Suspect]
     Active Substance: BUPRENORPHINE HYDROCHLORIDE\NALOXONE HYDROCHLORIDE
     Indication: Drug dependence
     Dosage: ONE IN THE MORNING AND ONE IN THE LATE EVENING

REACTIONS (4)
  - Feeling abnormal [Unknown]
  - Abdominal distension [Unknown]
  - Hypopnoea [Unknown]
  - Insomnia [Unknown]
